FAERS Safety Report 10620164 (Version 1)
Quarter: 2014Q4

REPORT INFORMATION
  Report Type: Spontaneous
  Country: US (occurrence: None)
  Receive Date: 20141201
  Receipt Date: 20141201
  Transmission Date: 20150529
  Serious: No
  Sender: FDA-Public Use
  Company Number: None

PATIENT
  Age: 31 Year
  Sex: Female
  Weight: 117.94 kg

DRUGS (1)
  1. TOBRAMYCIN AND DEXAMETHASONE [Suspect]
     Active Substance: DEXAMETHASONE\TOBRAMYCIN
     Indication: BLEPHARITIS
     Dosage: INTO THE EYE
     Dates: start: 20141121, end: 20141128

REACTIONS (2)
  - Product taste abnormal [None]
  - Product odour abnormal [None]

NARRATIVE: CASE EVENT DATE: 20141128
